FAERS Safety Report 11716354 (Version 1)
Quarter: 2015Q4

REPORT INFORMATION
  Report Type: Spontaneous
  Country: FR (occurrence: FR)
  Receive Date: 20151109
  Receipt Date: 20151109
  Transmission Date: 20160304
  Serious: Yes (Hospitalization)
  Sender: FDA-Public Use
  Company Number: FR-SA-2015SA173836

PATIENT
  Age: 68 Year
  Sex: Male
  Weight: 87 kg

DRUGS (4)
  1. PROPYLEX [Suspect]
     Active Substance: PROPYLENE GLYCOL
     Indication: HYPERTHYROIDISM
     Dosage: STRENGTH: 50 MG
     Route: 048
     Dates: start: 20150825, end: 20151014
  2. CORTANCYL [Suspect]
     Active Substance: PREDNISONE
     Indication: HYPERTHYROIDISM
     Dosage: DOSE: 150 MG IN MORNING, 30 MG IN EVENING
     Route: 048
     Dates: start: 20150825
  3. LASILIX [Suspect]
     Active Substance: FUROSEMIDE
     Dosage: STRENGTH: 40 MG
     Route: 048
     Dates: start: 20150825
  4. SOTALEX [Suspect]
     Active Substance: SOTALOL
     Indication: ATRIAL FIBRILLATION
     Route: 048
     Dates: start: 20150821

REACTIONS (1)
  - Hepatic enzyme increased [Not Recovered/Not Resolved]

NARRATIVE: CASE EVENT DATE: 20150831
